FAERS Safety Report 15439572 (Version 1)
Quarter: 2018Q3

REPORT INFORMATION
  Report Type: Spontaneous
  Country: US (occurrence: US)
  Receive Date: 20180928
  Receipt Date: 20180928
  Transmission Date: 20181010
  Serious: Yes (Hospitalization)
  Sender: FDA-Public Use
  Company Number: US-STRIDES ARCOLAB LIMITED-2017SP015248

PATIENT
  Age: 27 Year
  Sex: Female

DRUGS (1)
  1. METRONIDAZOLE. [Suspect]
     Active Substance: METRONIDAZOLE
     Indication: BACTERIAL VAGINOSIS
     Dosage: 500 MG, BID
     Route: 065

REACTIONS (8)
  - Acute psychosis [Recovered/Resolved]
  - Dysarthria [Recovered/Resolved]
  - Paranoia [Recovered/Resolved]
  - Delusion [Recovered/Resolved]
  - Movement disorder [Recovered/Resolved]
  - Hallucination, auditory [Recovered/Resolved]
  - Bradyphrenia [Recovered/Resolved]
  - Abnormal behaviour [Recovered/Resolved]
